FAERS Safety Report 13015194 (Version 4)
Quarter: 2017Q2

REPORT INFORMATION
  Report Type: Report from Study
  Country: DE (occurrence: DE)
  Receive Date: 20161211
  Receipt Date: 20170620
  Transmission Date: 20170830
  Serious: Yes (Death, Hospitalization, Other)
  Sender: FDA-Public Use
  Company Number: DE-BRISTOL-MYERS SQUIBB COMPANY-BMS-2016-103541

PATIENT
  Age: 59 Year
  Sex: Male

DRUGS (6)
  1. NIVOLUMAB [Suspect]
     Active Substance: NIVOLUMAB
     Indication: PRODUCT USED FOR UNKNOWN INDICATION
     Dosage: 1 MG/KG, Q2WK
     Route: 065
     Dates: start: 20160713
  2. PRAMIPEXOL [Concomitant]
     Active Substance: PRAMIPEXOLE
     Indication: DOPAMINERGIC DRUG THERAPY
     Dosage: 0.25 MG, QD
     Route: 065
  3. IPILIMUMAB [Suspect]
     Active Substance: IPILIMUMAB
     Indication: METASTATIC MALIGNANT MELANOMA
     Dosage: 3 MG/KG, Q3WK
     Route: 065
     Dates: start: 20160523
  4. TOLPERISONA [Concomitant]
     Indication: MUSCLE RELAXANT THERAPY
     Dosage: 40 MG, QD
     Route: 065
  5. NIVOLUMAB [Suspect]
     Active Substance: NIVOLUMAB
     Indication: METASTATIC MALIGNANT MELANOMA
     Dosage: 1 MG/KG, Q2WK
     Route: 065
     Dates: start: 20160523
  6. IPILIMUMAB [Suspect]
     Active Substance: IPILIMUMAB
     Indication: PRODUCT USED FOR UNKNOWN INDICATION
     Dosage: 3 MG/KG, Q3WK
     Route: 065
     Dates: start: 20160713

REACTIONS (16)
  - Autoimmune colitis [Unknown]
  - Extremity necrosis [Unknown]
  - Melanosis [Unknown]
  - Raynaud^s phenomenon [Unknown]
  - Cyanosis [Unknown]
  - Malignant neoplasm progression [Fatal]
  - General physical health deterioration [Unknown]
  - Arterial occlusive disease [Unknown]
  - Transaminases increased [Unknown]
  - Rash maculo-papular [Unknown]
  - Metastases to lymph nodes [Unknown]
  - Skin necrosis [Unknown]
  - Jaundice [Unknown]
  - Vasculitis [Unknown]
  - Amputation [Unknown]
  - Body temperature increased [Unknown]

NARRATIVE: CASE EVENT DATE: 20160603
